FAERS Safety Report 7721743-8 (Version None)
Quarter: 2011Q3

REPORT INFORMATION
  Report Type: 
  Country: None (occurrence: None)
  Receive Date: 20110831
  Receipt Date: 20110824
  Transmission Date: 20111222
  Serious: Yes (Hospitalization, Disabling, Other)
  Sender: FDA-Public Use
  Company Number: US-BAYER-2011-051848

PATIENT
  Age: 23 Year
  Sex: Female
  Weight: 84 kg

DRUGS (1)
  1. YAZ [Suspect]
     Indication: PREMENSTRUAL SYNDROME
     Dosage: UNK
     Dates: start: 20070401, end: 20071101

REACTIONS (5)
  - INJURY [None]
  - PULMONARY INFARCTION [None]
  - CHEST PAIN [None]
  - PULMONARY EMBOLISM [None]
  - CHEST DISCOMFORT [None]
